FAERS Safety Report 4408812-5 (Version None)
Quarter: 2004Q3

REPORT INFORMATION
  Report Type: 
  Country: None (occurrence: None)
  Receive Date: 20040727
  Receipt Date: 20040526
  Transmission Date: 20050211
  Serious: Yes (Death, Life-Threatening, Disabling)
  Sender: FDA-Public Use
  Company Number: BE-MERCK-0405BEL00040

PATIENT
  Age: 29 Year
  Sex: Male
  Weight: 108 kg

DRUGS (16)
  1. ABELCET [Concomitant]
     Indication: BRONCHOPULMONARY ASPERGILLOSIS
     Route: 042
     Dates: start: 20040108, end: 20040122
  2. CANCIDAS [Suspect]
     Indication: ASPERGILLOSIS
     Route: 042
     Dates: start: 20040105, end: 20040122
  3. VISTIDE [Concomitant]
     Indication: OBLITERATIVE BRONCHIOLITIS
     Route: 042
     Dates: start: 20040109, end: 20040122
  4. VISTIDE [Concomitant]
     Indication: VIRAL HAEMORRHAGIC CYSTITIS
     Route: 042
     Dates: start: 20040109, end: 20040122
  5. CYCLOSPORINE [Concomitant]
     Indication: IMMUNOSUPPRESSION
     Route: 048
  6. NEUPOGEN [Concomitant]
     Route: 058
  7. GANCICLOVIR [Concomitant]
     Indication: ANTIVIRAL PROPHYLAXIS
     Route: 065
     Dates: start: 20040106
  8. SANDOGLOBULIN [Concomitant]
     Route: 041
  9. SOLU-CORTEF [Concomitant]
     Indication: SEPTIC SHOCK
     Route: 042
     Dates: start: 20040119, end: 20040122
  10. LANSOPRAZOLE [Concomitant]
     Route: 048
  11. MERONEM [Concomitant]
     Route: 041
  12. LEVOPHED [Concomitant]
     Indication: SHOCK
     Route: 041
     Dates: start: 20040119
  13. PENTACARINAT [Concomitant]
     Indication: INFECTION PROPHYLAXIS
     Route: 055
     Dates: start: 20040105, end: 20040122
  14. VIRAZOLE [Concomitant]
     Indication: OBLITERATIVE BRONCHIOLITIS
     Route: 055
     Dates: start: 20040109, end: 20040122
  15. VIRAZOLE [Concomitant]
     Indication: VIRAL HAEMORRHAGIC CYSTITIS
     Route: 055
     Dates: start: 20040109, end: 20040122
  16. URSO FALK [Concomitant]
     Route: 048

REACTIONS (10)
  - ACUTE RESPIRATORY DISTRESS SYNDROME [None]
  - ASPERGILLOSIS [None]
  - BRAIN DEATH [None]
  - CYTOMEGALOVIRUS CHORIORETINITIS [None]
  - DRUG INEFFECTIVE [None]
  - GRAFT VERSUS HOST DISEASE [None]
  - MENINGORRHAGIA [None]
  - OBLITERATIVE BRONCHIOLITIS [None]
  - RESPIRATORY SYNCYTIAL VIRUS INFECTION [None]
  - SEPTIC SHOCK [None]
